FAERS Safety Report 11330922 (Version 1)
Quarter: 2015Q3

REPORT INFORMATION
  Report Type: Spontaneous
  Country: US (occurrence: None)
  Receive Date: 20150731
  Receipt Date: 20150731
  Transmission Date: 20151125
  Serious: No
  Sender: FDA-Public Use
  Company Number: None

PATIENT
  Age: 67 Year
  Sex: Male

DRUGS (18)
  1. ASPIRIN. [Concomitant]
     Active Substance: ASPIRIN
  2. ETHACRYNIC ACID [Concomitant]
     Active Substance: ETHACRYNIC ACID
  3. CHLORHEXADINE [Concomitant]
     Active Substance: CHLORHEXIDINE
  4. DIPHENHYDRAMINE. [Concomitant]
     Active Substance: DIPHENHYDRAMINE
  5. RANITIDINE [Concomitant]
     Active Substance: RANITIDINE\RANITIDINE HYDROCHLORIDE
  6. TRAZODONE [Concomitant]
     Active Substance: TRAZODONE HYDROCHLORIDE
  7. ACETAMINOPHEN. [Concomitant]
     Active Substance: ACETAMINOPHEN
  8. ATORVASTATIN [Concomitant]
     Active Substance: ATORVASTATIN
  9. DOCUSATE [Concomitant]
     Active Substance: DOCUSATE
  10. ENALAPRIL [Concomitant]
     Active Substance: ENALAPRIL
  11. INSULIN [Concomitant]
     Active Substance: INSULIN NOS
  12. ZINCE OXIDE/ COD LIVER OIL [Concomitant]
  13. WARFARIN [Suspect]
     Active Substance: WARFARIN
     Indication: ATRIAL FIBRILLATION
     Route: 048
     Dates: start: 20141030, end: 20141108
  14. METOPROLOL [Concomitant]
     Active Substance: METOPROLOL
  15. TRIAMCINOLONE CREAM [Concomitant]
  16. AMIODARONE [Concomitant]
     Active Substance: AMIODARONE
  17. FERROUS SULFATE [Concomitant]
     Active Substance: FERROUS SULFATE\FERROUS SULFATE, DRIED
  18. SENNA [Concomitant]
     Active Substance: SENNA LEAF\SENNOSIDES\SENNOSIDES A AND B

REACTIONS (1)
  - International normalised ratio increased [None]

NARRATIVE: CASE EVENT DATE: 20141109
